FAERS Safety Report 5981358-9 (Version None)
Quarter: 2008Q4

REPORT INFORMATION
  Report Type: 
  Country: None (occurrence: None)
  Receive Date: 20081205
  Receipt Date: 20081202
  Transmission Date: 20090506
  Serious: Yes (Other)
  Sender: FDA-Public Use
  Company Number: GB-MERCK-0812GBR00019

PATIENT
  Age: 64 Year
  Sex: Male
  Weight: 87 kg

DRUGS (4)
  1. ZOCOR [Suspect]
     Indication: HYPERCHOLESTEROLAEMIA
     Route: 048
     Dates: start: 20070327, end: 20081112
  2. ASPIRIN [Concomitant]
     Route: 065
     Dates: start: 19961025
  3. CALCIPOTRIENE [Concomitant]
     Route: 065
     Dates: start: 19960625
  4. NITROGLYCERIN [Concomitant]
     Route: 065
     Dates: start: 20010305

REACTIONS (1)
  - PSORIASIS [None]
